FAERS Safety Report 24428332 (Version 2)
Quarter: 2025Q1

REPORT INFORMATION
  Report Type: Report from Study
  Country: CA (occurrence: CA)
  Receive Date: 20241011
  Receipt Date: 20250205
  Transmission Date: 20250409
  Serious: Yes (Death, Other)
  Sender: IPSEN BIOPHARMACEUTICALS, INC.
  Company Number: CA-IPSEN Group, Research and Development-2024-20518

PATIENT
  Age: 64 Year
  Sex: Female

DRUGS (6)
  1. LANREOTIDE ACETATE [Suspect]
     Active Substance: LANREOTIDE ACETATE
     Indication: Carcinoid syndrome
     Route: 058
     Dates: start: 20200507, end: 202401
  2. TYLENOL EXTRA STRENGTH [Concomitant]
     Active Substance: ACETAMINOPHEN
  3. CAPECITABINE [Concomitant]
     Active Substance: CAPECITABINE
     Dosage: 150 MG 6 CO BID FOR 14 DAYS
  4. TEMOZOLOMIDE [Concomitant]
     Active Substance: TEMOZOLOMIDE
     Dosage: 250 MG 1 CO DIE DAY 15 FOR 5 DAYS.
  5. MIDODRINE [Concomitant]
     Active Substance: MIDODRINE
  6. PANTOPRAZOLE [Concomitant]
     Active Substance: PANTOPRAZOLE

REACTIONS (1)
  - Sepsis [Fatal]
